FAERS Safety Report 5677123-2 (Version None)
Quarter: 2008Q1

REPORT INFORMATION
  Report Type: 
  Country: None (occurrence: None)
  Receive Date: 20080324
  Receipt Date: 20080324
  Transmission Date: 20080703
  Serious: No
  Sender: FDA-Public Use
  Company Number: None

PATIENT
  Age: 50 Year
  Sex: Male
  Weight: 83 kg

DRUGS (1)
  1. HEPARIN [Suspect]
     Dosage: 6000 UNITS M,W,F

REACTIONS (4)
  - DIALYSIS [None]
  - DYSPNOEA [None]
  - HYPERSENSITIVITY [None]
  - PYREXIA [None]
